FAERS Safety Report 5603784-X (Version None)
Quarter: 2008Q1

REPORT INFORMATION
  Report Type: 
  Country: None (occurrence: None)
  Receive Date: 20080122
  Receipt Date: 20071206
  Transmission Date: 20080703
  Serious: Yes (Hospitalization)
  Sender: FDA-Public Use
  Company Number: US022046

PATIENT
  Age: 51 Year
  Sex: Female

DRUGS (1)
  1. ACTIQ [Suspect]
     Indication: MIGRAINE
     Dosage: 1.2 MG BUCCAL
     Route: 002

REACTIONS (5)
  - DEAFNESS [None]
  - DRUG DEPENDENCE [None]
  - MASTOIDITIS [None]
  - OVERDOSE [None]
  - TOOTH LOSS [None]
